FAERS Safety Report 19625508 (Version 1)
Quarter: 2021Q3

REPORT INFORMATION
  Report Type: Spontaneous
  Country: IT (occurrence: IT)
  Receive Date: 20210729
  Receipt Date: 20210729
  Transmission Date: 20211014
  Serious: Yes (Other)
  Sender: FDA-Public Use
  Company Number: IT-009507513-2107ITA007675

PATIENT
  Age: 59 Year
  Sex: Female
  Weight: 60 kg

DRUGS (2)
  1. KEYTRUDA [Suspect]
     Active Substance: PEMBROLIZUMAB
     Indication: RENAL NEOPLASM
     Dosage: 200 MILLIGRAM, 1 CYCLICAL, CONCENTRATE FOR SOLUTION FOR INFUSION, INTERACTING DRUGS
     Route: 042
  2. INLYTA [Suspect]
     Active Substance: AXITINIB
     Indication: RENAL NEOPLASM
     Dosage: 2 DOSAGE FORM, QD, INTERACTING DRUGS
     Route: 048

REACTIONS (1)
  - Hepatotoxicity [Recovered/Resolved]

NARRATIVE: CASE EVENT DATE: 20210511
